FAERS Safety Report 9684557 (Version 1)
Quarter: 2013Q4

REPORT INFORMATION
  Report Type: Report from Study
  Country: PK (occurrence: PK)
  Receive Date: 20131112
  Receipt Date: 20131112
  Transmission Date: 20140711
  Serious: Yes (Other)
  Sender: FDA-Public Use
  Company Number: PK-ELI_LILLY_AND_COMPANY-PK201310010344

PATIENT
  Age: 60 Year
  Sex: Female
  Weight: 80 kg

DRUGS (3)
  1. HUMAN INSULIN (RDNA ORIGIN) [Suspect]
     Indication: DIABETES MELLITUS
     Dosage: 100 U, QD
     Route: 058
     Dates: start: 201003, end: 20131026
  2. DIAMICRON [Concomitant]
     Dosage: 60 MG, QD
  3. GLUCOPHAGE [Concomitant]
     Dosage: 850 MG, TID

REACTIONS (2)
  - Hyperglycaemia [Not Recovered/Not Resolved]
  - Scar [Not Recovered/Not Resolved]
